FAERS Safety Report 5753190-2 (Version None)
Quarter: 2008Q2

REPORT INFORMATION
  Report Type: 
  Country: None (occurrence: None)
  Receive Date: 20080527
  Receipt Date: 20080425
  Transmission Date: 20081010
  Serious: Yes (Other)
  Sender: FDA-Public Use
  Company Number: IDA-00060

PATIENT
  Sex: Male

DRUGS (14)
  1. INDERAL [Suspect]
     Indication: HYPERTENSION
     Dosage: 60 MG QD MG BID/DOSE TEXT: 0.6-1.0 MG/HR; TPL, FORMULATION; TABL/TPL, FORMULATION; TABL/TPL, FORMULA
     Route: 064
     Dates: start: 20060424, end: 20060427
  2. INDERAL [Suspect]
     Indication: HYPERTENSION
     Dosage: 60 MG QD MG BID/DOSE TEXT: 0.6-1.0 MG/HR; TPL, FORMULATION; TABL/TPL, FORMULATION; TABL/TPL, FORMULA
     Route: 064
     Dates: start: 20060425, end: 20060428
  3. CALONAL (PARACETAMOL) [Concomitant]
  4. BRCACT (CEFPIROME SULFATE) [Concomitant]
  5. SOSEGON (PENTAZOCINE) [Concomitant]
  6. PRIMPERAN TAB [Concomitant]
  7. MILLISROL (GLYCERYL TRINITRATE) [Concomitant]
  8. HYDRALAZINE HYDROCHLORIDE [Concomitant]
  9. METHYLDOPA [Concomitant]
  10. MAGNESIUM OXIDE [Concomitant]
  11. MAGNESIUM OXIDE [Concomitant]
  12. SENNOSIDE [Concomitant]
  13. TEPRENONE [Concomitant]
  14. MAGNESIUM SULFATE [Concomitant]

REACTIONS (6)
  - CAESAREAN SECTION [None]
  - MATERNAL DRUGS AFFECTING FOETUS [None]
  - NEONATAL DISORDER [None]
  - NEONATAL RESPIRATORY DISTRESS SYNDROME [None]
  - PREMATURE BABY [None]
  - UMBILICAL HERNIA [None]
